FAERS Safety Report 25975930 (Version 2)
Quarter: 2025Q4

REPORT INFORMATION
  Report Type: Spontaneous
  Country: JP (occurrence: JP)
  Receive Date: 20251029
  Receipt Date: 20251107
  Transmission Date: 20260117
  Serious: Yes (Hospitalization, Other)
  Sender: BIOMARIN
  Company Number: JP-BIOMARINAP-JP-2025-169718

PATIENT
  Age: 1 Year
  Sex: Female

DRUGS (1)
  1. VOXZOGO [Suspect]
     Active Substance: VOSORITIDE
     Indication: Osteochondrodysplasia
     Dosage: 0.4 MILLIGRAM, QD
     Dates: start: 20241210

REACTIONS (1)
  - Foramen magnum stenosis [Recovering/Resolving]

NARRATIVE: CASE EVENT DATE: 20250901
